APPROVED DRUG PRODUCT: CICLOPIROX
Active Ingredient: CICLOPIROX
Strength: 1%
Dosage Form/Route: SHAMPOO;TOPICAL
Application: A090269 | Product #001 | TE Code: AT
Applicant: SUN PHARMA CANADA INC
Approved: Feb 23, 2011 | RLD: No | RS: No | Type: RX